FAERS Safety Report 15435343 (Version 1)
Quarter: 2018Q3

REPORT INFORMATION
  Report Type: Spontaneous
  Country: US (occurrence: US)
  Receive Date: 20180924
  Receipt Date: 20180924
  Transmission Date: 20181010
  Serious: No
  Sender: FDA-Public Use
  Company Number: None

PATIENT
  Age: 63 Year
  Sex: Female
  Weight: 77.6 kg

DRUGS (1)
  1. NUVIGIL [Suspect]
     Active Substance: ARMODAFINIL
     Dates: start: 20180803, end: 20180914

REACTIONS (6)
  - Aphasia [None]
  - Fall [None]
  - Failure to thrive [None]
  - Vomiting [None]
  - Nausea [None]
  - Gait disturbance [None]

NARRATIVE: CASE EVENT DATE: 20180914
